FAERS Safety Report 17723437 (Version 1)
Quarter: 2020Q2

REPORT INFORMATION
  Report Type: Spontaneous
  Country: US (occurrence: US)
  Receive Date: 20200429
  Receipt Date: 20200429
  Transmission Date: 20200714
  Serious: No
  Sender: FDA-Public Use
  Company Number: US-GLAXOSMITHKLINE-US2020AMR072148

PATIENT
  Age: 7 Year
  Sex: Male

DRUGS (1)
  1. ALBUTEROL SULFATE INHALATION POWDER [Suspect]
     Active Substance: ALBUTEROL SULFATE
     Indication: ASTHMA
     Dosage: 2 PUFF(S) EVERY 4-6 HOURS AS NEEDED
     Route: 065

REACTIONS (4)
  - Wrong technique in product usage process [Unknown]
  - Product dose omission [Unknown]
  - Product use issue [Unknown]
  - Wheezing [Unknown]
